FAERS Safety Report 8328982 (Version 3)
Quarter: 2013Q3

REPORT INFORMATION
  Report Type: Spontaneous
  Country: CA (occurrence: CA)
  Receive Date: 20120110
  Receipt Date: 20130904
  Transmission Date: 20140515
  Serious: Yes (Death)
  Sender: FDA-Public Use
  Company Number: CA-ROCHE-1028600

PATIENT
  Age: 69 Year
  Sex: Male

DRUGS (4)
  1. XELODA [Suspect]
     Indication: PANCREATIC CARCINOMA
     Route: 048
     Dates: start: 201107
  2. PANTOPRAZOLE [Concomitant]
  3. ACTONEL [Concomitant]
     Route: 065
  4. GEMCITABINE [Concomitant]

REACTIONS (2)
  - Disease progression [Fatal]
  - Drug intolerance [Fatal]
